FAERS Safety Report 16882703 (Version 1)
Quarter: 2019Q4

REPORT INFORMATION
  Report Type: Report from Study
  Country: DE (occurrence: DE)
  Receive Date: 20191003
  Receipt Date: 20191003
  Transmission Date: 20200122
  Serious: Yes (Other)
  Sender: FDA-Public Use
  Company Number: DE-AMGEN-DEUNI2019159894

PATIENT
  Age: 79 Year
  Sex: Female
  Weight: 57 kg

DRUGS (21)
  1. DENOSUMAB [Concomitant]
     Active Substance: DENOSUMAB
     Indication: PROPHYLAXIS
     Dosage: 120 MILLIGRAM, QMO
     Dates: start: 20190829
  2. EUTHYROX [Concomitant]
     Active Substance: LEVOTHYROXINE SODIUM
     Indication: HYPOTHYROIDISM
     Dosage: 75 MICROGRAM, QD
     Dates: start: 20160223
  3. COTRIM FORTE [Concomitant]
     Active Substance: SULFAMETHOXAZOLE\TRIMETHOPRIM
     Indication: PROPHYLAXIS
     Dosage: 960 MILLIGRAM, 3 TIMES/WK
     Dates: start: 20190822
  4. BUPRENORPHINE [BUPRENORPHINE HYDROCHLORIDE] [Concomitant]
     Indication: LUMBAR SPINAL STENOSIS
     Dosage: 70 MICROGRAM/H, QD
     Dates: start: 20160502
  5. PANTOZOL [Concomitant]
     Active Substance: PANTOPRAZOLE SODIUM
     Indication: PROPHYLAXIS
     Dosage: 40 MILLIGRAM, TID
     Dates: start: 20161214
  6. OXCARBAZEPIN [Concomitant]
     Active Substance: OXCARBAZEPINE
     Indication: NEUROPATHY PERIPHERAL
     Dosage: 150 MILLIGRAM, TID
     Dates: start: 20161108
  7. KALINOR [POTASSIUM CHLORIDE] [Concomitant]
     Indication: PROPHYLAXIS
     Dosage: 1 INTERNATIONAL UNIT, 3 TIMES/WK
     Dates: start: 20160714
  8. VITAMIN B12 [Concomitant]
     Active Substance: CYANOCOBALAMIN
     Indication: ANAEMIA VITAMIN B12 DEFICIENCY
     Dosage: 1000 INTERNATIONAL UNIT, Q3MO
     Dates: start: 20160223
  9. DEKRISTOL [Concomitant]
     Active Substance: CHOLECALCIFEROL
     Indication: PROPHYLAXIS
     Dosage: 2000 INTERNATIONAL UNIT
     Dates: start: 20170503
  10. MARCUMAR [Concomitant]
     Active Substance: PHENPROCOUMON
     Indication: ATRIAL FIBRILLATION
     Dosage: UNK UNK, QD
     Dates: start: 20170208
  11. NOVAMINSULFON [Concomitant]
     Active Substance: METAMIZOLE
     Indication: LUMBAR SPINAL STENOSIS
     Dosage: 500 MILLIGRAM, BID
     Dates: start: 20160502
  12. PREGABALIN. [Concomitant]
     Active Substance: PREGABALIN
     Indication: NEUROPATHY PERIPHERAL
     Dosage: 50 MILLIGRAM, BID
     Dates: start: 20160513
  13. ACICLOVIR [Concomitant]
     Active Substance: ACYCLOVIR
     Indication: PROPHYLAXIS
     Dosage: 400 MILLIGRAM, BID
     Dates: start: 20190822
  14. DEXAMETHASONE. [Suspect]
     Active Substance: DEXAMETHASONE
     Indication: PLASMA CELL MYELOMA
     Dosage: 20 MILLIGRAM
     Route: 065
     Dates: start: 20190829, end: 20190913
  15. MCP [Concomitant]
     Active Substance: METOCLOPRAMIDE HYDROCHLORIDE
     Indication: PROPHYLAXIS
     Dosage: 10 MILLIGRAM, AS NECESSARY
     Dates: start: 20190822
  16. CARFILZOMIB [Suspect]
     Active Substance: CARFILZOMIB
     Indication: PLASMA CELL MYELOMA
     Dosage: 20 MILLIGRAM/SQ. METER
     Route: 042
     Dates: start: 20190829, end: 20190830
  17. CARFILZOMIB [Suspect]
     Active Substance: CARFILZOMIB
     Dosage: 56 MILLIGRAM/SQ. METER
     Route: 042
     Dates: start: 20190905, end: 20190913
  18. INTRATECT [Concomitant]
     Active Substance: HUMAN IMMUNOGLOBULIN G
     Indication: PROPHYLAXIS
     Dosage: 15 GRAM, QMO
  19. DIGIMERCK [Concomitant]
     Active Substance: DIGITOXIN
     Indication: CARDIAC FAILURE CHRONIC
     Dosage: 0.07 MILLIGRAM, QD
     Dates: start: 20160223
  20. FUROSEMID [FUROSEMIDE] [Concomitant]
     Active Substance: FUROSEMIDE
     Indication: CARDIAC FAILURE CHRONIC
     Dosage: 40 MILLIGRAM, QD
     Dates: start: 20161214
  21. EPOETIN [Concomitant]
     Active Substance: ERYTHROPOIETIN
     Indication: IRON DEFICIENCY ANAEMIA
     Dosage: 3000 INTERNATIONAL UNIT, QWK
     Dates: start: 20190822

REACTIONS (1)
  - Polyneuropathy [Not Recovered/Not Resolved]

NARRATIVE: CASE EVENT DATE: 20190905
